FAERS Safety Report 10365656 (Version 2)
Quarter: 2014Q3

REPORT INFORMATION
  Report Type: Spontaneous
  Country: IT (occurrence: IT)
  Receive Date: 20140806
  Receipt Date: 20140903
  Transmission Date: 20150326
  Serious: Yes (Hospitalization)
  Sender: FDA-Public Use
  Company Number: PHHY2014IT094277

PATIENT
  Sex: Female

DRUGS (5)
  1. ALLOPURINOL. [Suspect]
     Active Substance: ALLOPURINOL
     Dosage: 150 MG, QD
     Route: 048
     Dates: start: 20140401, end: 20140422
  2. PARACETAMOL [Concomitant]
     Active Substance: ACETAMINOPHEN
     Indication: HYPERPYREXIA
     Dosage: 3 G, QD
     Route: 048
     Dates: start: 20140417, end: 20140423
  3. ALPRAZOLAM. [Concomitant]
     Active Substance: ALPRAZOLAM
     Dosage: 0.25 DRP, UNK
     Route: 048
  4. CARDIOASPIRIN [Concomitant]
     Active Substance: ASPIRIN
     Dosage: 100 MG, UNK
  5. SIMVASTATIN. [Suspect]
     Active Substance: SIMVASTATIN
     Dosage: 20 MG, QD
     Route: 048
     Dates: start: 20140401, end: 20140422

REACTIONS (3)
  - Rash [Recovered/Resolved]
  - Hyperpyrexia [Recovered/Resolved]
  - Toxic skin eruption [Recovered/Resolved]

NARRATIVE: CASE EVENT DATE: 20140417
